FAERS Safety Report 8013555-5 (Version None)
Quarter: 2011Q4

REPORT INFORMATION
  Report Type: 
  Country: None (occurrence: None)
  Receive Date: 20111229
  Receipt Date: 20111215
  Transmission Date: 20120403
  Serious: Yes (Death, Hospitalization)
  Sender: FDA-Public Use
  Company Number: ES-CELGENEUS-144-50794-11122088

PATIENT
  Sex: Male
  Weight: 70 kg

DRUGS (9)
  1. NEUPOGEN [Concomitant]
     Route: 065
  2. LANIRAPID [Concomitant]
     Route: 065
  3. VIDAZA [Suspect]
     Dosage: 130 MG/DL
     Route: 065
     Dates: start: 20110114
  4. ONDASETRON [Concomitant]
     Route: 065
  5. VIDAZA [Suspect]
     Indication: ACUTE MYELOID LEUKAEMIA
     Dosage: 130 MILLIGRAM
     Route: 065
     Dates: start: 20101129
  6. CAPTOPRIL [Concomitant]
     Route: 065
  7. OMEPRAZOLE [Concomitant]
     Route: 065
  8. FRAXIPARINE [Concomitant]
     Route: 065
  9. ACENOCOUMAROL [Concomitant]
     Route: 065

REACTIONS (2)
  - SEPSIS [None]
  - PNEUMONIA [None]
